FAERS Safety Report 11603210 (Version 1)
Quarter: 2015Q4

REPORT INFORMATION
  Report Type: Spontaneous
  Country: US (occurrence: None)
  Receive Date: 20151005
  Receipt Date: 20151005
  Transmission Date: 20160304
  Serious: Yes (Hospitalization, Disabling)
  Sender: FDA-Public Use
  Company Number: None

PATIENT
  Age: 23 Year
  Sex: Female
  Weight: 85.73 kg

DRUGS (3)
  1. LATUDA [Suspect]
     Active Substance: LURASIDONE HYDROCHLORIDE
     Indication: DISSOCIATIVE IDENTITY DISORDER
     Route: 048
     Dates: start: 20140108, end: 20140128
  2. ZYPREXA [Concomitant]
     Active Substance: OLANZAPINE
  3. CLOZARIL [Concomitant]
     Active Substance: CLOZAPINE

REACTIONS (2)
  - Aggression [None]
  - Premenstrual pain [None]

NARRATIVE: CASE EVENT DATE: 20140108
